FAERS Safety Report 9677253 (Version 1)
Quarter: 2013Q4

REPORT INFORMATION
  Report Type: Spontaneous
  Country: FR (occurrence: FR)
  Receive Date: 20131108
  Receipt Date: 20131108
  Transmission Date: 20140711
  Serious: Yes (Hospitalization)
  Sender: FDA-Public Use
  Company Number: FR-SA-2013SA111848

PATIENT
  Age: 86 Year
  Sex: Male
  Weight: 123 kg

DRUGS (13)
  1. GLIMEPIRIDE [Suspect]
     Indication: TYPE 2 DIABETES MELLITUS
     Route: 048
     Dates: end: 20130909
  2. LANTUS [Suspect]
     Indication: TYPE 2 DIABETES MELLITUS
     Route: 058
  3. NOVONORM [Suspect]
     Indication: TYPE 2 DIABETES MELLITUS
     Route: 048
     Dates: end: 20130909
  4. ONGLYZA [Suspect]
     Indication: TYPE 2 DIABETES MELLITUS
     Route: 048
     Dates: end: 20130909
  5. IMOVANE [Concomitant]
     Route: 048
  6. EXELON [Concomitant]
     Route: 062
  7. KARDEGIC [Concomitant]
     Route: 048
  8. CRESTOR [Concomitant]
     Route: 048
  9. TEMERIT [Concomitant]
     Route: 048
  10. LASILIX SPECIAL [Concomitant]
     Route: 048
  11. LASILIX [Concomitant]
     Route: 048
  12. ATACAND [Concomitant]
     Route: 048
  13. CHIBRO-PROSCAR [Concomitant]
     Route: 048

REACTIONS (5)
  - Renal failure [Not Recovered/Not Resolved]
  - Hypoglycaemic coma [Recovered/Resolved with Sequelae]
  - Hypoglycaemia [Recovered/Resolved with Sequelae]
  - Hypothermia [Recovered/Resolved with Sequelae]
  - Confusional state [Recovered/Resolved with Sequelae]
